FAERS Safety Report 7656673-3 (Version None)
Quarter: 2011Q3

REPORT INFORMATION
  Report Type: 
  Country: None (occurrence: None)
  Receive Date: 20110804
  Receipt Date: 20110727
  Transmission Date: 20111222
  Serious: Yes (Other)
  Sender: FDA-Public Use
  Company Number: JP-MERCK-1108USA00228

PATIENT

DRUGS (7)
  1. LENDORMIN [Concomitant]
     Dosage: DAILY DOSAGE UNKNOWN
     Route: 048
  2. STROMECTOL [Suspect]
     Dosage: DOSING FREQUENCY UNKNOWN
     Route: 048
     Dates: start: 20110701
  3. HIRNAMIN (LEVOMEPROMAZINE MALEATE) [Concomitant]
     Dosage: DAILY DOSAGE UNKNOWN
     Route: 048
  4. AKINETON TABLETS [Concomitant]
     Dosage: DAILY DOSAGE UNKNOWN
     Route: 048
  5. RISPERDAL [Concomitant]
     Dosage: DAILY DOSAGE UNKNOWN
     Route: 048
  6. STROMECTOL [Suspect]
     Indication: ACARODERMATITIS
     Dosage: DOSING FREQUENCY UNKNOWN
     Route: 048
     Dates: start: 20110701, end: 20110701
  7. DIAZEPAM [Concomitant]
     Dosage: DAILY DOSAGE UNKNOWN
     Route: 048

REACTIONS (1)
  - GENERAL PHYSICAL HEALTH DETERIORATION [None]
